FAERS Safety Report 5005668-7 (Version None)
Quarter: 2006Q2

REPORT INFORMATION
  Report Type: 
  Country: None (occurrence: None)
  Receive Date: 20060517
  Receipt Date: 20060517
  Transmission Date: 20061013
  Serious: Yes (Other)
  Sender: FDA-Public Use
  Company Number: None

PATIENT
  Age: 35 Year
  Sex: Male
  Weight: 59.8748 kg

DRUGS (2)
  1. NONI JUICE - CALIFORNIA ACADEMY OF HEALTH [Suspect]
     Indication: MEDICAL DIET
     Dates: start: 20060321
  2. KEPPRA [Suspect]

REACTIONS (2)
  - CONVULSION [None]
  - DRUG INTERACTION [None]
